FAERS Safety Report 25498565 (Version 2)
Quarter: 2025Q3

REPORT INFORMATION
  Report Type: Spontaneous
  Country: EU (occurrence: EU)
  Receive Date: 20250701
  Receipt Date: 20250707
  Transmission Date: 20251020
  Serious: Yes (Other)
  Sender: SANDOZ
  Company Number: EU-NOVPHSZ-PHHY2019CZ227571

PATIENT
  Age: 50 Year
  Sex: Male

DRUGS (18)
  1. BENDAMUSTINE [Suspect]
     Active Substance: BENDAMUSTINE
     Route: 065
  2. BENDAMUSTINE [Suspect]
     Active Substance: BENDAMUSTINE
     Indication: Chronic lymphocytic leukaemia
     Route: 065
  3. CYCLOPHOSPHAMIDE [Suspect]
     Active Substance: CYCLOPHOSPHAMIDE
     Indication: Chronic lymphocytic leukaemia
     Route: 065
  4. CYCLOPHOSPHAMIDE [Suspect]
     Active Substance: CYCLOPHOSPHAMIDE
     Indication: Richter^s syndrome
     Route: 065
  5. DECADRON (DEXAMETHASONE SODIUM PHOSPHATE) [Suspect]
     Active Substance: DEXAMETHASONE SODIUM PHOSPHATE
     Indication: Chronic lymphocytic leukaemia
     Route: 065
  6. DECADRON (DEXAMETHASONE SODIUM PHOSPHATE) [Suspect]
     Active Substance: DEXAMETHASONE SODIUM PHOSPHATE
     Route: 065
  7. DOXORUBICIN [Suspect]
     Active Substance: DOXORUBICIN
     Indication: Chronic lymphocytic leukaemia
     Route: 065
  8. DOXORUBICIN [Suspect]
     Active Substance: DOXORUBICIN
     Indication: Richter^s syndrome
     Route: 065
  9. FLUDARABINE [Suspect]
     Active Substance: FLUDARABINE PHOSPHATE
     Indication: Chronic lymphocytic leukaemia
     Route: 065
  10. PREDNISONE [Suspect]
     Active Substance: PREDNISONE
     Indication: Richter^s syndrome
     Route: 065
  11. PREDNISONE [Suspect]
     Active Substance: PREDNISONE
     Indication: Chronic lymphocytic leukaemia
     Route: 065
  12. RITUXIMAB [Suspect]
     Active Substance: RITUXIMAB
     Indication: Chronic lymphocytic leukaemia
     Route: 065
  13. RITUXIMAB [Suspect]
     Active Substance: RITUXIMAB
     Indication: Richter^s syndrome
     Route: 065
  14. RITUXIMAB [Suspect]
     Active Substance: RITUXIMAB
     Indication: Chronic lymphocytic leukaemia
  15. VINCRISTINE [Suspect]
     Active Substance: VINCRISTINE
     Indication: Richter^s syndrome
     Route: 065
  16. VINCRISTINE [Suspect]
     Active Substance: VINCRISTINE
     Indication: Chronic lymphocytic leukaemia
     Route: 065
  17. IBRUTINIB [Concomitant]
     Active Substance: IBRUTINIB
     Indication: Chronic lymphocytic leukaemia
     Dosage: 420 MG, QD
     Route: 048
     Dates: start: 201706
  18. VENETOCLAX [Concomitant]
     Active Substance: VENETOCLAX
     Indication: Chronic lymphocytic leukaemia
     Dosage: 20 MG, QDINITIAL DOSE, FOLLOWED BY GRADUAL DOSE ESCALATION ACCORDING TO A STANDARD SCHEDU
     Route: 048

REACTIONS (2)
  - Neutropenic sepsis [Unknown]
  - Treatment failure [Unknown]
